FAERS Safety Report 21241527 (Version 1)
Quarter: 2022Q3

REPORT INFORMATION
  Report Type: Spontaneous
  Country: FR (occurrence: FR)
  Receive Date: 20220823
  Receipt Date: 20220823
  Transmission Date: 20221027
  Serious: Yes (Other)
  Sender: FDA-Public Use
  Company Number: None

PATIENT
  Age: 47 Year
  Sex: Female
  Weight: 66 kg

DRUGS (4)
  1. DICLOFENAC [Suspect]
     Active Substance: DICLOFENAC
     Indication: Ankylosing spondylitis
     Dosage: UNIT DOSE : 2 DF , FREQUENCY TIME :1 DAY   , DURATION : 4 DAY
     Route: 065
     Dates: start: 20220606, end: 20220610
  2. DICLOFENAC [Suspect]
     Active Substance: DICLOFENAC
     Dosage: UNIT DOSE : 150 MG  , FREQUENCY TIME :1 DAY   , DURATION : 4 DAY
     Route: 065
     Dates: start: 20220606, end: 20220610
  3. MERCILON [Suspect]
     Active Substance: DESOGESTREL\ETHINYL ESTRADIOL
     Indication: Contraception
     Dosage: THERAPY START DATE :NASK
     Dates: end: 20220615
  4. COSENTYX [Suspect]
     Active Substance: SECUKINUMAB
     Indication: Ankylosing spondylitis
     Dosage: FORM STRENGTH : 150 MG ,  UNIT DOSE : 1 DF , FREQUENCY TIME : 1 MONTH , DURATION : 82 DAYS
     Dates: start: 20220222, end: 20220515

REACTIONS (1)
  - Rash papular [Recovered/Resolved]

NARRATIVE: CASE EVENT DATE: 20220610
